FAERS Safety Report 5830686-6 (Version None)
Quarter: 2008Q3

REPORT INFORMATION
  Report Type: 
  Country: None (occurrence: None)
  Receive Date: 20080801
  Receipt Date: 20071004
  Transmission Date: 20090109
  Serious: No
  Sender: FDA-Public Use
  Company Number: US-BRISTOL-MYERS SQUIBB COMPANY-13929500

PATIENT
  Sex: Female

DRUGS (11)
  1. COUMADIN [Suspect]
     Dosage: PATIENT RECEIVED ALTERNATE DOSES OF 5 MG AND 2.5 MG.
     Dates: start: 20070926
  2. NORVASC [Concomitant]
  3. TENORMIN [Concomitant]
  4. SINGULAIR [Concomitant]
  5. ZOCOR [Concomitant]
  6. FLOVENT [Concomitant]
  7. PEPCID [Concomitant]
  8. SYNTHROID [Concomitant]
  9. COLACE [Concomitant]
  10. COZAAR [Concomitant]
  11. MOBIC [Concomitant]

REACTIONS (4)
  - BLADDER PAIN [None]
  - NOCTURIA [None]
  - URETHRAL PAIN [None]
  - URINARY INCONTINENCE [None]
